FAERS Safety Report 4687097-9 (Version None)
Quarter: 2005Q2

REPORT INFORMATION
  Report Type: 
  Country: None (occurrence: None)
  Receive Date: 20050608
  Receipt Date: 20050524
  Transmission Date: 20051028
  Serious: Yes (Hospitalization, Other)
  Sender: FDA-Public Use
  Company Number: 2004109404

PATIENT
  Age: 72 Year
  Sex: Female
  Weight: 45.3597 kg

DRUGS (9)
  1. CORTEF [Suspect]
     Indication: ADRENAL DISORDER
     Dosage: (10 MG), ORAL
     Route: 048
     Dates: start: 20040101
  2. CORTEF [Suspect]
     Indication: BLOOD ALDOSTERONE DECREASED
     Dosage: (10 MG), ORAL
     Route: 048
     Dates: start: 20040101
  3. THYROID TAB [Concomitant]
  4. FOSAMAX [Concomitant]
  5. ZOLOFT [Concomitant]
  6. ACETYLSALICYLIC ACID SRT [Concomitant]
  7. VITAMIN C (VITAMIN C) [Concomitant]
  8. MIRALAX [Concomitant]
  9. ATIVAN [Concomitant]

REACTIONS (14)
  - APNOEA [None]
  - BLOOD ALDOSTERONE DECREASED [None]
  - BLOOD ELECTROLYTES INCREASED [None]
  - DIAPHRAGMATIC DISORDER [None]
  - DIZZINESS [None]
  - EYE PAIN [None]
  - FATIGUE [None]
  - FEELING ABNORMAL [None]
  - HYPOAESTHESIA [None]
  - HYPOVENTILATION [None]
  - INCREASED UPPER AIRWAY SECRETION [None]
  - LACRIMATION INCREASED [None]
  - RESPIRATORY DISORDER [None]
  - SOMNOLENCE [None]
